FAERS Safety Report 16366773 (Version 1)
Quarter: 2019Q2

REPORT INFORMATION
  Report Type: Spontaneous
  Country: US (occurrence: US)
  Receive Date: 20190529
  Receipt Date: 20190529
  Transmission Date: 20190711
  Serious: No
  Sender: FDA-Public Use
  Company Number: US-SA-2019SA139372

PATIENT
  Sex: Male

DRUGS (7)
  1. CLOBETASOL [Concomitant]
     Active Substance: CLOBETASOL
  2. FINASTERIDE. [Concomitant]
     Active Substance: FINASTERIDE
  3. TRIAMTERENE/HYDROCHLOROTHIAZIDE [Concomitant]
     Active Substance: HYDROCHLOROTHIAZIDE\TRIAMTERENE
  4. LISINOPRIL. [Concomitant]
     Active Substance: LISINOPRIL
  5. TAMSULOSIN [Concomitant]
     Active Substance: TAMSULOSIN
  6. DUPIXENT [Suspect]
     Active Substance: DUPILUMAB
     Indication: DERMATITIS ATOPIC
     Dosage: 1 DF, QOW
     Route: 058
     Dates: start: 20180724
  7. DOXYCYCLINE HYCLATE [DOXYCYCLINE HYDROCHLORIDE] [Concomitant]

REACTIONS (1)
  - Pruritus [Not Recovered/Not Resolved]
